FAERS Safety Report 9808673 (Version 1)
Quarter: 2014Q1

REPORT INFORMATION
  Report Type: Spontaneous
  Country: FR (occurrence: FR)
  Receive Date: 20140110
  Receipt Date: 20140110
  Transmission Date: 20141002
  Serious: Yes (Other)
  Sender: FDA-Public Use
  Company Number: FR-BRISTOL-MYERS SQUIBB COMPANY-19975630

PATIENT
  Age: 56 Year
  Sex: Male

DRUGS (1)
  1. ORENCIA FOR INJ 250 MG/VIAL [Suspect]
     Route: 042
     Dates: start: 20100416, end: 20130606

REACTIONS (2)
  - Pseudofolliculitis barbae [Recovered/Resolved]
  - Aphthous stomatitis [Unknown]
